FAERS Safety Report 9494592 (Version 2)
Quarter: 2013Q3

REPORT INFORMATION
  Report Type: Spontaneous
  Country: ZA (occurrence: ZA)
  Receive Date: 20130903
  Receipt Date: 20130913
  Transmission Date: 20140515
  Serious: Yes (Hospitalization)
  Sender: FDA-Public Use
  Company Number: ZA-NOVOPROD-386211

PATIENT
  Age: 51 Year
  Sex: Female
  Weight: 104 kg

DRUGS (7)
  1. NOVOMIX 30 FLEXPEN [Suspect]
     Indication: DIABETES MELLITUS
     Dosage: 20 IU MORNING AND 14 IU AT NIGHT
     Route: 058
     Dates: start: 201206
  2. CIPROXACIN [Concomitant]
     Indication: ANTIBIOTIC THERAPY
  3. PURESIS [Concomitant]
     Indication: DIURETIC THERAPY
     Route: 065
     Dates: start: 20130508
  4. SARTAN [Concomitant]
     Indication: HYPERTENSION
     Dosage: 50 MG, QD (TABLET)
     Route: 048
  5. ASPIRIN [Concomitant]
     Indication: ANTICOAGULANT THERAPY
  6. METFORMIN [Concomitant]
     Indication: TYPE 2 DIABETES MELLITUS
     Route: 065
  7. SIMVASTATIN [Concomitant]
     Indication: BLOOD CHOLESTEROL ABNORMAL

REACTIONS (2)
  - Hypertension [Recovered/Resolved]
  - Visual acuity reduced [Recovering/Resolving]
